FAERS Safety Report 7655757-3 (Version None)
Quarter: 2011Q3

REPORT INFORMATION
  Report Type: 
  Country: None (occurrence: None)
  Receive Date: 20110804
  Receipt Date: 20110713
  Transmission Date: 20111222
  Serious: Yes (Other)
  Sender: FDA-Public Use
  Company Number: US-ASTRAZENECA-2011SE38610

PATIENT
  Sex: Female
  Weight: 2.2 kg

DRUGS (4)
  1. BUDESONIDE [Suspect]
     Route: 064
     Dates: start: 20051001
  2. ALBUTEROL [Suspect]
     Indication: ASTHMA
     Route: 064
     Dates: start: 20051001
  3. FLUOXETINE [Suspect]
     Indication: DEPRESSION
     Route: 064
  4. FORMOTEROL FUMARATE [Suspect]
     Indication: ASTHMA
     Route: 064
     Dates: start: 20051001

REACTIONS (2)
  - SEPSIS [None]
  - MATERNAL EXPOSURE DURING PREGNANCY [None]
